FAERS Safety Report 7419463-2 (Version None)
Quarter: 2011Q2

REPORT INFORMATION
  Report Type: 
  Country: None (occurrence: None)
  Receive Date: 20110413
  Receipt Date: 20110413
  Transmission Date: 20111010
  Serious: Yes (Other)
  Sender: FDA-Public Use
  Company Number: None

PATIENT
  Sex: Female
  Weight: 71.8 kg

DRUGS (1)
  1. HUMIRA [Suspect]
     Indication: RHEUMATOID ARTHRITIS
     Dosage: 40 MG ONCE EVERY OTHER WEEK SUBCUTANEOUSLY (057)
     Route: 058
     Dates: start: 20051201, end: 20101101

REACTIONS (1)
  - B-CELL LYMPHOMA [None]
